FAERS Safety Report 10371860 (Version 1)
Quarter: 2014Q3

REPORT INFORMATION
  Report Type: Spontaneous
  Country: US (occurrence: US)
  Receive Date: 20140808
  Receipt Date: 20140808
  Transmission Date: 20150326
  Serious: Yes (Hospitalization)
  Sender: FDA-Public Use
  Company Number: US-GLAXOSMITHKLINE-A1084197A

PATIENT
  Sex: Male

DRUGS (3)
  1. AVANDIA [Suspect]
     Active Substance: ROSIGLITAZONE MALEATE
     Indication: DIABETES MELLITUS
     Dosage: 2MG PER DAY
     Dates: start: 20051126, end: 20070714
  2. AVANDAMET [Suspect]
     Active Substance: METFORMIN HYDROCHLORIDE\ROSIGLITAZONE MALEATE
     Indication: DIABETES MELLITUS
     Dates: start: 20040920, end: 20050708
  3. AVANDAMET [Suspect]
     Active Substance: METFORMIN HYDROCHLORIDE\ROSIGLITAZONE MALEATE
     Indication: DIABETES MELLITUS
     Dates: start: 20040920, end: 20050708

REACTIONS (10)
  - Cardiac failure congestive [Unknown]
  - Coronary artery disease [Unknown]
  - Pulmonary oedema [Unknown]
  - Myocardial infarction [Unknown]
  - Pericardial effusion [Unknown]
  - Pleural effusion [Unknown]
  - Cardio-respiratory arrest [Unknown]
  - Atrial fibrillation [Unknown]
  - Congestive cardiomyopathy [Unknown]
  - Atrioventricular block complete [Unknown]
